FAERS Safety Report 9856484 (Version 2)
Quarter: 2014Q1

REPORT INFORMATION
  Report Type: Spontaneous
  Country: JP (occurrence: JP)
  Receive Date: 20140130
  Receipt Date: 20140206
  Transmission Date: 20141002
  Serious: Yes (Hospitalization)
  Sender: FDA-Public Use
  Company Number: PHHY2014JP008707

PATIENT
  Age: 10 Year
  Sex: Female
  Weight: 28.7 kg

DRUGS (5)
  1. ZONISAMIDE [Suspect]
     Indication: EPILEPSY
     Dosage: UNK UKN, UNK
  2. VALPROIC ACID [Concomitant]
     Indication: EPILEPSY
     Dosage: UNK UKN, UNK
  3. PHENOBARBITAL [Concomitant]
     Indication: EPILEPSY
     Dosage: UNK UKN, UNK
  4. CLONAZEPAM [Concomitant]
     Indication: EPILEPSY
     Dosage: UNK UKN, UNK
  5. ANTIBIOTICS [Concomitant]
     Dosage: UNK UKN, UNK

REACTIONS (7)
  - Hydronephrosis [Recovered/Resolved]
  - Calculus ureteric [Recovered/Resolved]
  - Crystalluria [Recovered/Resolved]
  - Calculus urinary [Recovered/Resolved]
  - Renal impairment [Recovered/Resolved]
  - Haematuria [Recovered/Resolved]
  - Urine output decreased [Recovered/Resolved]
